FAERS Safety Report 10543195 (Version 1)
Quarter: 2014Q4

REPORT INFORMATION
  Report Type: Spontaneous
  Country: US (occurrence: None)
  Receive Date: 20141024
  Receipt Date: 20141024
  Transmission Date: 20150529
  Serious: No
  Sender: FDA-Public Use
  Company Number: None

PATIENT
  Age: 62 Year
  Sex: Female
  Weight: 52.62 kg

DRUGS (1)
  1. FENTANYL TRANSDERMAL SYSTEM [Suspect]
     Active Substance: FENTANYL
     Dosage: APPLIED TO A SURFACE, USUALLY THE SKIN
     Route: 061
     Dates: start: 20140905, end: 20141004

REACTIONS (6)
  - Product quality issue [None]
  - Somnolence [None]
  - Product physical issue [None]
  - Dyspnoea [None]
  - Drug ineffective [None]
  - Overdose [None]

NARRATIVE: CASE EVENT DATE: 20141015
